FAERS Safety Report 8535679-6 (Version None)
Quarter: 2012Q3

REPORT INFORMATION
  Report Type: 
  Country: None (occurrence: None)
  Receive Date: 20120725
  Receipt Date: 20120716
  Transmission Date: 20120928
  Serious: Yes (Other)
  Sender: FDA-Public Use
  Company Number: US-JNJFOC-20120710714

PATIENT

DRUGS (10)
  1. ANTIRETROVIRAL MEDICATIONS [Concomitant]
     Indication: HIV INFECTION
     Route: 065
  2. VINCRISTINE [Suspect]
     Indication: LYMPHOMA AIDS RELATED
     Dosage: NOT MORE THAN 2 MG
     Route: 042
  3. NEUPOGEN [Concomitant]
     Indication: PALLIATIVE CARE
     Route: 065
  4. PEGFILGRASTIM [Concomitant]
     Indication: PALLIATIVE CARE
     Route: 065
  5. DOXORUBICIN HYDROCHLORIDE [Suspect]
     Indication: LYMPHOMA AIDS RELATED
     Dosage: ON DAY 1
     Route: 042
  6. PREDNISONE [Suspect]
     Indication: LYMPHOMA AIDS RELATED
     Dosage: DAYS 1-5 OF EACH CYCLE
     Route: 048
  7. CYCLOPHOSPHAMIDE [Suspect]
     Indication: LYMPHOMA AIDS RELATED
     Route: 042
  8. UNKNOWN MEDICATION [Concomitant]
     Indication: ANTIFUNGAL PROPHYLAXIS
     Route: 065
  9. RITUXIMAB [Suspect]
     Indication: LYMPHOMA AIDS RELATED
     Route: 042
  10. NEUPOGEN [Concomitant]
     Indication: PALLIATIVE CARE
     Route: 065

REACTIONS (1)
  - SKIN INFECTION [None]
